FAERS Safety Report 22359420 (Version 1)
Quarter: 2023Q2

REPORT INFORMATION
  Report Type: Spontaneous
  Country: US (occurrence: US)
  Receive Date: 20230524
  Receipt Date: 20230524
  Transmission Date: 20230722
  Serious: Yes (Other)
  Sender: FDA-Public Use
  Company Number: US-MYLANLABS-2023M1051580

PATIENT
  Sex: Female

DRUGS (1)
  1. GEODON [Suspect]
     Active Substance: ZIPRASIDONE HYDROCHLORIDE\ZIPRASIDONE MESYLATE
     Indication: Product used for unknown indication
     Dosage: UNK
     Route: 030

REACTIONS (5)
  - Atrial fibrillation [Unknown]
  - Mental fatigue [Unknown]
  - Lethargy [Unknown]
  - Confusional state [Unknown]
  - Fatigue [Unknown]
